FAERS Safety Report 25912697 (Version 1)
Quarter: 2025Q4

REPORT INFORMATION
  Report Type: Spontaneous
  Country: US (occurrence: US)
  Receive Date: 20251013
  Receipt Date: 20251013
  Transmission Date: 20260119
  Serious: Yes (Other)
  Sender: AMGEN
  Company Number: US-AMGEN-USASP2025201137

PATIENT
  Age: 37 Year
  Sex: Female

DRUGS (1)
  1. PREDNISONE [Suspect]
     Active Substance: PREDNISONE
     Indication: Immunoglobulin G4 related disease
     Dosage: UNK, HIGH DOSE
     Route: 048

REACTIONS (3)
  - Ophthalmic herpes simplex [Unknown]
  - Drug ineffective for unapproved indication [Unknown]
  - Off label use [Unknown]
